FAERS Safety Report 14826184 (Version 2)
Quarter: 2018Q4

REPORT INFORMATION
  Report Type: Spontaneous
  Country: FR (occurrence: FR)
  Receive Date: 20180430
  Receipt Date: 20181025
  Transmission Date: 20190204
  Serious: Yes (Other)
  Sender: FDA-Public Use
  Company Number: FR-MERCK KGAA-2046826

PATIENT
  Age: 32 Year
  Sex: Male

DRUGS (3)
  1. LEVOTHYROXINE. [Suspect]
     Active Substance: LEVOTHYROXINE
     Dates: start: 20170531, end: 2017
  2. EUTHYROX [Suspect]
     Active Substance: LEVOTHYROXINE SODIUM
     Indication: PRODUCT USED FOR UNKNOWN INDICATION
     Dates: start: 2017
  3. LEVOTHYROXINE. [Suspect]
     Active Substance: LEVOTHYROXINE
     Dates: start: 20170218

REACTIONS (19)
  - Myalgia [Recovered/Resolved]
  - Arthralgia [Recovered/Resolved]
  - Feeling abnormal [None]
  - Malaise [None]
  - Emotional distress [None]
  - Loss of personal independence in daily activities [None]
  - Irritability [None]
  - Weight increased [None]
  - Musculoskeletal stiffness [Recovered/Resolved]
  - Anti-thyroid antibody positive [None]
  - Social avoidant behaviour [None]
  - General physical health deterioration [None]
  - Fatigue [None]
  - Dyspnoea [None]
  - Anxiety [None]
  - Disturbance in social behaviour [None]
  - Headache [None]
  - Personal relationship issue [None]
  - Movement disorder [None]

NARRATIVE: CASE EVENT DATE: 2017
